FAERS Safety Report 15458906 (Version 3)
Quarter: 2018Q4

REPORT INFORMATION
  Report Type: Report from Study
  Country: BE (occurrence: BE)
  Receive Date: 20181003
  Receipt Date: 20181116
  Transmission Date: 20190204
  Serious: Yes (Life-Threatening, Hospitalization)
  Sender: FDA-Public Use
  Company Number: BE-PORTOLA PHARMACEUTICALS, INC.-2017BE000050

PATIENT
  Age: 77 Year
  Sex: Male

DRUGS (29)
  1. PERINDOPRIL [Concomitant]
     Active Substance: PERINDOPRIL
     Dosage: 5.0 MG
     Route: 048
     Dates: start: 20170203, end: 20170207
  2. ENOXAPARINE SODIQUE [Concomitant]
     Active Substance: ENOXAPARIN SODIUM
     Dosage: 40 MG, UNK
     Route: 058
     Dates: start: 20170205, end: 20170209
  3. PROPOFOL. [Concomitant]
     Active Substance: PROPOFOL
     Dosage: 2.40 G
     Route: 042
     Dates: start: 20170202, end: 20170205
  4. NICARDIPINE [Concomitant]
     Active Substance: NICARDIPINE
     Dosage: 150 MG
     Route: 042
     Dates: start: 20170205, end: 20170207
  5. TEMOCILLINE [Concomitant]
     Dosage: 4 G, UNK
     Route: 042
     Dates: start: 20170205, end: 20170210
  6. ENOXAPARINE SODIQUE [Concomitant]
     Active Substance: ENOXAPARIN SODIUM
     Dosage: 120 MG, UNK
     Route: 058
     Dates: start: 20170214, end: 20170219
  7. MOXONIDINE [Concomitant]
     Active Substance: MOXONIDINE
     Dosage: 0.8 MG, UNK
     Route: 048
     Dates: start: 20170209
  8. ENOXAPARINE SODIQUE [Concomitant]
     Active Substance: ENOXAPARIN SODIUM
     Dosage: 80 MG, UNK
     Route: 058
     Dates: start: 20170210, end: 20170213
  9. OMEPRAZOLE. [Concomitant]
     Active Substance: OMEPRAZOLE
     Dosage: 40 MG, UNK
     Route: 048
     Dates: start: 20170207
  10. ANDEXXA [Suspect]
     Active Substance: ANDEXANET ALFA
     Indication: PROCOAGULANT THERAPY
     Dosage: 400 MG, ONCE IV BOLUS
     Route: 040
     Dates: start: 20170127, end: 20170127
  11. DIAZEPAM. [Concomitant]
     Active Substance: DIAZEPAM
     Dosage: 5 MG
     Route: 042
     Dates: start: 20170204, end: 20170207
  12. BISOPROLOL [Concomitant]
     Active Substance: BISOPROLOL
     Dosage: 2.5 MG
     Route: 048
     Dates: start: 20170207
  13. LEVETIRACETAM. [Concomitant]
     Active Substance: LEVETIRACETAM
     Dosage: 1500.00 MG
     Route: 042
     Dates: start: 20170203
  14. LEVOTHYROXINE. [Concomitant]
     Active Substance: LEVOTHYROXINE
     Dosage: 125 ?G
     Route: 048
     Dates: start: 20170203
  15. DEXMEDETOMIDINE. [Concomitant]
     Active Substance: DEXMEDETOMIDINE
     Dosage: 960 ?G
     Route: 042
     Dates: start: 20170203, end: 20170207
  16. PANTOPRAZOL                        /01263204/ [Concomitant]
     Active Substance: PANTOPRAZOLE SODIUM
     Dosage: 40 MG
     Route: 042
     Dates: start: 20170203, end: 20170206
  17. PARACETAMOL [Concomitant]
     Active Substance: ACETAMINOPHEN
     Dosage: 4.0 MG
     Route: 042
     Dates: start: 20170203
  18. AMLODIPINE [Concomitant]
     Active Substance: AMLODIPINE BESYLATE
     Dosage: 10 MG, UNK
     Route: 048
     Dates: start: 20170206
  19. DUOVENT [Concomitant]
     Active Substance: FENOTEROL HYDROBROMIDE
     Dosage: 4 ML, INHALED
     Route: 055
     Dates: start: 20170218
  20. MOLSIDOMINE [Concomitant]
     Active Substance: MOLSIDOMINE
     Dosage: 16.00 MG
     Route: 048
     Dates: start: 20170204
  21. ROCURONIUM [Concomitant]
     Active Substance: ROCURONIUM BROMIDE
     Dosage: 50 MG
     Route: 042
     Dates: start: 20170204, end: 20170204
  22. FLUCLOXACILLINE                    /00239101/ [Concomitant]
     Active Substance: FLUCLOXACILLIN
     Dosage: 6 G, UNK
     Route: 042
     Dates: start: 20170205
  23. KALIUMCHLORIDE [Concomitant]
     Dosage: 1 G, UNK
     Route: 048
     Dates: start: 20170209, end: 20170210
  24. ANDEXXA [Suspect]
     Active Substance: ANDEXANET ALFA
     Dosage: 480 MG; 4210 MCG/MIN, ONCE IV INFUSION
     Route: 042
     Dates: start: 20170127, end: 20170127
  25. RIVAROXABAN [Concomitant]
     Active Substance: RIVAROXABAN
     Dosage: UNK
     Dates: start: 201701, end: 20170127
  26. REMIFENTANIL [Concomitant]
     Active Substance: REMIFENTANIL
     Dosage: 240 MG
     Route: 042
     Dates: start: 20170202, end: 20170205
  27. FUROSEMIDE. [Concomitant]
     Active Substance: FUROSEMIDE
     Dosage: 40 MG, UNK
     Route: 042
     Dates: start: 20170205
  28. LOSARTAN. [Concomitant]
     Active Substance: LOSARTAN
     Dosage: 50 MG, UNK
     Route: 048
     Dates: start: 20170207
  29. EMCONCOR [Concomitant]
     Active Substance: BISOPROLOL FUMARATE
     Dosage: 2.5 MG, UNK
     Dates: start: 20170214

REACTIONS (2)
  - Deep vein thrombosis [Recovered/Resolved with Sequelae]
  - Pulmonary embolism [Not Recovered/Not Resolved]

NARRATIVE: CASE EVENT DATE: 20170210
